FAERS Safety Report 7989104-4 (Version None)
Quarter: 2011Q4

REPORT INFORMATION
  Report Type: 
  Country: None (occurrence: None)
  Receive Date: 20111219
  Receipt Date: 20111206
  Transmission Date: 20120403
  Serious: Yes (Other)
  Sender: FDA-Public Use
  Company Number: IN-US-EMD SERONO, INC.-7099794

PATIENT
  Sex: Female

DRUGS (1)
  1. GONAL-F [Suspect]

REACTIONS (1)
  - ABORTION MISSED [None]
